FAERS Safety Report 8220893-X (Version None)
Quarter: 2012Q1

REPORT INFORMATION
  Report Type: 
  Country: None (occurrence: None)
  Receive Date: 20120316
  Receipt Date: 20120308
  Transmission Date: 20120608
  Serious: Yes (Other)
  Sender: FDA-Public Use
  Company Number: PHHY2012PT020824

PATIENT
  Age: 45 Year
  Sex: Female

DRUGS (4)
  1. PREDNISONE [Concomitant]
     Dosage: 15 MG, PER DAY
  2. PREDNISONE [Concomitant]
     Dosage: 60 MG, PER DAY
  3. PREDNISONE [Concomitant]
     Indication: CUTANEOUS LUPUS ERYTHEMATOSUS
     Dosage: 5 MG, PER DAY
  4. HYDROXYCHLOROQUINE SULFATE [Suspect]
     Indication: CUTANEOUS LUPUS ERYTHEMATOSUS
     Dosage: 400 MG, PER DAY

REACTIONS (10)
  - APHASIA [None]
  - WEIGHT DECREASED [None]
  - POSTERIOR REVERSIBLE ENCEPHALOPATHY SYNDROME [None]
  - HEMIANOPIA HOMONYMOUS [None]
  - PYREXIA [None]
  - PERICARDIAL EFFUSION [None]
  - THROMBOCYTOPENIA [None]
  - LYMPHOPENIA [None]
  - SYSTEMIC LUPUS ERYTHEMATOSUS [None]
  - HEADACHE [None]
